FAERS Safety Report 9280512 (Version 2)
Quarter: 2013Q2

REPORT INFORMATION
  Report Type: Report from Study
  Country: CA (occurrence: CA)
  Receive Date: 20130509
  Receipt Date: 20130523
  Transmission Date: 20140414
  Serious: Yes (Hospitalization, Other)
  Sender: FDA-Public Use
  Company Number: CA-JNJFOC-20130501155

PATIENT
  Age: 51 Year
  Sex: Female
  Weight: 72.9 kg

DRUGS (3)
  1. REMICADE [Suspect]
     Indication: RHEUMATOID ARTHRITIS
     Route: 042
     Dates: start: 20040604
  2. METHOTREXATE [Concomitant]
     Route: 065
  3. CELEBREX [Concomitant]
     Route: 065

REACTIONS (3)
  - Convulsion [Recovered/Resolved]
  - Asthenia [Unknown]
  - Feeling abnormal [Unknown]
